FAERS Safety Report 8510884-3 (Version None)
Quarter: 2012Q3

REPORT INFORMATION
  Report Type: 
  Country: None (occurrence: None)
  Receive Date: 20120710
  Receipt Date: 20120710
  Transmission Date: 20120928
  Serious: Yes (Hospitalization)
  Sender: FDA-Public Use
  Company Number: None

PATIENT
  Sex: Female

DRUGS (2)
  1. TUBERCULIN NOS [Suspect]
     Indication: TUBERCULIN TEST
     Dosage: 0.1 ML ONCE LEFT FOREARM; 0.1ML ONCE RIGHT FOREARM
     Dates: start: 20120609
  2. TUBERCULIN NOS [Suspect]
     Indication: TUBERCULIN TEST
     Dosage: 0.1 ML ONCE LEFT FOREARM; 0.1ML ONCE RIGHT FOREARM
     Dates: start: 20120609

REACTIONS (3)
  - OEDEMA PERIPHERAL [None]
  - INJECTION SITE URTICARIA [None]
  - PAIN IN EXTREMITY [None]
